FAERS Safety Report 25099221 (Version 1)
Quarter: 2025Q1

REPORT INFORMATION
  Report Type: Spontaneous
  Country: US (occurrence: US)
  Receive Date: 20250320
  Receipt Date: 20250320
  Transmission Date: 20250409
  Serious: No
  Sender: SANOFI AVENTIS
  Company Number: US-SA-2025SA080705

PATIENT
  Age: 75 Year
  Sex: Female

DRUGS (10)
  1. DUPIXENT [Suspect]
     Active Substance: DUPILUMAB
     Indication: Asthma
     Route: 058
  2. BUPRENORPHINE [Concomitant]
     Active Substance: BUPRENORPHINE
  3. FUROSEMIDE [Concomitant]
     Active Substance: FUROSEMIDE
  4. GABAPENTIN [Concomitant]
     Active Substance: GABAPENTIN
  5. GEMTESA [Concomitant]
     Active Substance: VIBEGRON
  6. PANTOPRAZOLE [Concomitant]
     Active Substance: PANTOPRAZOLE
  7. POTASSIUM [Concomitant]
     Active Substance: POTASSIUM
  8. TAMSULOSIN HYDROCHLORIDE [Concomitant]
     Active Substance: TAMSULOSIN HYDROCHLORIDE
  9. TIZANIDINE HYDROCHLORIDE [Concomitant]
     Active Substance: TIZANIDINE HYDROCHLORIDE
  10. TRAZODONE HCL [Concomitant]
     Active Substance: TRAZODONE HYDROCHLORIDE

REACTIONS (1)
  - Injection site pain [Unknown]
